FAERS Safety Report 4355766-6 (Version None)
Quarter: 2004Q2

REPORT INFORMATION
  Report Type: 
  Country: None (occurrence: None)
  Receive Date: 20040505
  Receipt Date: 20040422
  Transmission Date: 20050107
  Serious: No
  Sender: FDA-Public Use
  Company Number: 440008M03USA

PATIENT
  Age: 45 Year
  Sex: Male

DRUGS (1)
  1. SEROSTIM [Suspect]
     Indication: HIV WASTING SYNDROME
     Dates: end: 20030312

REACTIONS (2)
  - CARCINOMA IN SITU [None]
  - HAEMORRHOIDS [None]
